FAERS Safety Report 19753216 (Version 1)
Quarter: 2021Q3

REPORT INFORMATION
  Report Type: Spontaneous
  Country: GB (occurrence: GB)
  Receive Date: 20210827
  Receipt Date: 20210827
  Transmission Date: 20211014
  Serious: Yes (Other)
  Sender: FDA-Public Use
  Company Number: GB-NOVOPROD-839786

PATIENT
  Sex: Female

DRUGS (2)
  1. NOVOSEVEN [Suspect]
     Active Substance: COAGULATION FACTOR VIIA RECOMBINANT HUMAN
     Indication: GLANZMANN^S DISEASE
     Dosage: 5MG EVERY 4 HOURS
     Route: 065
  2. NOVOSEVEN [Suspect]
     Active Substance: COAGULATION FACTOR VIIA RECOMBINANT HUMAN
     Dosage: UNK(DOSE DECREASED)
     Route: 065

REACTIONS (3)
  - Deep vein thrombosis [Unknown]
  - Anti-HLA antibody test positive [Unknown]
  - Antibody test positive [Unknown]
